FAERS Safety Report 9125772 (Version 1)
Quarter: 2013Q1

REPORT INFORMATION
  Report Type: Spontaneous
  Country: AR (occurrence: AR)
  Receive Date: 20130228
  Receipt Date: 20130228
  Transmission Date: 20140127
  Serious: Yes (Other)
  Sender: FDA-Public Use
  Company Number: AR-AMGEN-ARGSP2013013635

PATIENT
  Age: 64 Year
  Sex: Female

DRUGS (3)
  1. ENBREL [Suspect]
     Indication: PSORIATIC ARTHROPATHY
     Dosage: 50 MG, WEEKLY
     Route: 058
     Dates: start: 20120119
  2. METHOTREXATE [Concomitant]
     Dosage: UNK UNK, UNK
  3. T4 [Concomitant]
     Dosage: UNK UNK, UNK

REACTIONS (1)
  - Psoriatic arthropathy [Not Recovered/Not Resolved]
